FAERS Safety Report 6213928-7 (Version None)
Quarter: 2009Q2

REPORT INFORMATION
  Report Type: 
  Country: None (occurrence: None)
  Receive Date: 20090602
  Receipt Date: 20090519
  Transmission Date: 20091009
  Serious: Yes (Hospitalization)
  Sender: FDA-Public Use
  Company Number: 2009-192111-NL

PATIENT
  Age: 17 Year
  Sex: Female

DRUGS (5)
  1. ROCURONIUM BROMIDE [Suspect]
     Indication: HYPOTONIA
     Dosage: INTRAVENOUS (NOS)/INTRAVENOUS DRIP
     Route: 041
     Dates: start: 20090216, end: 20090216
  2. ROCURONIUM BROMIDE [Suspect]
     Indication: HYPOTONIA
     Dosage: INTRAVENOUS (NOS)/INTRAVENOUS DRIP
     Route: 041
     Dates: start: 20090216, end: 20090216
  3. PROPOFOL [Concomitant]
  4. SEVOFLURANE [Concomitant]
  5. CEFAZOLIN SODIUM [Concomitant]

REACTIONS (8)
  - ACUTE STRESS DISORDER [None]
  - ASTHENIA [None]
  - BLOOD CREATINE PHOSPHOKINASE INCREASED [None]
  - COLD SWEAT [None]
  - FALL [None]
  - MUSCULAR WEAKNESS [None]
  - PALLOR [None]
  - PARALYSIS [None]
